FAERS Safety Report 5811842-X (Version None)
Quarter: 2008Q3

REPORT INFORMATION
  Report Type: 
  Country: None (occurrence: None)
  Receive Date: 20080714
  Receipt Date: 20080701
  Transmission Date: 20090109
  Serious: Yes (Hospitalization)
  Sender: FDA-Public Use
  Company Number: 001758

PATIENT
  Age: 15 Year
  Sex: Male

DRUGS (6)
  1. BUSULFEX (BUSULFAN) INJECTION [Suspect]
     Indication: STEM CELL TRANSPLANT
     Dosage: 14.4 ML, DAILY DOSE INTRAVENOUS; 19.2 ML, DAILY DOSE; INTRAVENOUS; 4.8 ML, DAILY DOSE; INTRAVENOUS
     Route: 042
     Dates: start: 20070214, end: 20070214
  2. BUSULFEX (BUSULFAN) INJECTION [Suspect]
     Indication: STEM CELL TRANSPLANT
     Dosage: 14.4 ML, DAILY DOSE INTRAVENOUS; 19.2 ML, DAILY DOSE; INTRAVENOUS; 4.8 ML, DAILY DOSE; INTRAVENOUS
     Route: 042
     Dates: start: 20070215, end: 20070217
  3. BUSULFEX (BUSULFAN) INJECTION [Suspect]
     Indication: STEM CELL TRANSPLANT
     Dosage: 14.4 ML, DAILY DOSE INTRAVENOUS; 19.2 ML, DAILY DOSE; INTRAVENOUS; 4.8 ML, DAILY DOSE; INTRAVENOUS
     Route: 042
     Dates: start: 20070218, end: 20070218
  4. FILGRASTIM [Concomitant]
  5. PHENYTOIN [Concomitant]
  6. CYCLOPHOSPHAMIDE [Concomitant]

REACTIONS (7)
  - ACTIVATED PARTIAL THROMBOPLASTIN TIME PROLONGED [None]
  - ANOREXIA [None]
  - CARDIAC FAILURE [None]
  - CARDIOTOXICITY [None]
  - NAUSEA [None]
  - RENAL FAILURE [None]
  - VOMITING [None]
